FAERS Safety Report 5844147-1 (Version None)
Quarter: 2008Q3

REPORT INFORMATION
  Report Type: 
  Country: None (occurrence: None)
  Receive Date: 20080813
  Receipt Date: 20080801
  Transmission Date: 20090109
  Serious: Yes (Other)
  Sender: FDA-Public Use
  Company Number: US-PFIZER INC-2008043206

PATIENT
  Sex: Female
  Weight: 98 kg

DRUGS (9)
  1. CHANTIX [Suspect]
     Indication: SMOKING CESSATION THERAPY
     Route: 048
     Dates: start: 20080301, end: 20080501
  2. CHANTIX [Suspect]
     Indication: TOBACCO ABUSE
  3. CALCIUM [Concomitant]
  4. MULTI-VITAMINS [Concomitant]
  5. IRON [Concomitant]
  6. URSODIOL [Concomitant]
  7. FAMOTIDINE [Concomitant]
  8. METFORMIN HCL [Concomitant]
  9. CHOLESTEROL [Concomitant]

REACTIONS (3)
  - ABDOMINAL PAIN UPPER [None]
  - HEADACHE [None]
  - NAUSEA [None]
